FAERS Safety Report 12477637 (Version 3)
Quarter: 2018Q1

REPORT INFORMATION
  Report Type: Report from Study
  Country: BR (occurrence: BR)
  Receive Date: 20160617
  Receipt Date: 20180302
  Transmission Date: 20180508
  Serious: Yes (Death, Hospitalization, Disabling)
  Sender: FDA-Public Use
  Company Number: BR-BAYER-2016-114567

PATIENT
  Age: 72 Year
  Sex: Male

DRUGS (2)
  1. GLIFAGE [Concomitant]
     Active Substance: METFORMIN HYDROCHLORIDE
     Indication: DIABETES MELLITUS
     Dosage: 1 DF, QD
     Route: 048
  2. NEXAVAR [Suspect]
     Active Substance: SORAFENIB
     Indication: HEPATIC CANCER
     Dosage: 400 MG, QD
     Route: 048
     Dates: start: 20160523, end: 201606

REACTIONS (5)
  - Feeding disorder [None]
  - Fall [Recovering/Resolving]
  - Asthenia [Recovering/Resolving]
  - Dysstasia [None]
  - Hepatic cancer [Fatal]

NARRATIVE: CASE EVENT DATE: 2016
